FAERS Safety Report 8565192-1 (Version None)
Quarter: 2012Q3

REPORT INFORMATION
  Report Type: 
  Country: None (occurrence: None)
  Receive Date: 20120803
  Receipt Date: 20120727
  Transmission Date: 20120928
  Serious: Yes (Hospitalization)
  Sender: FDA-Public Use
  Company Number: CA-GLAXOSMITHKLINE-A0933604A

PATIENT
  Sex: Female
  Weight: 61.4 kg

DRUGS (1)
  1. FLUTICASONE PROPIONATE [Suspect]
     Indication: ASTHMA
     Dosage: 1PUFF PER DAY
     Route: 055
     Dates: start: 20060101

REACTIONS (15)
  - INCORRECT DOSE ADMINISTERED [None]
  - OROPHARYNGEAL DISCOMFORT [None]
  - COUGH [None]
  - FALL [None]
  - SPINAL COLUMN INJURY [None]
  - PNEUMONIA [None]
  - CHEST DISCOMFORT [None]
  - PAIN [None]
  - INCREASED UPPER AIRWAY SECRETION [None]
  - MALAISE [None]
  - SPEECH DISORDER [None]
  - DIAPHRAGMATIC RUPTURE [None]
  - SPINAL COMPRESSION FRACTURE [None]
  - DYSPHONIA [None]
  - THROAT TIGHTNESS [None]
